FAERS Safety Report 25691639 (Version 2)
Quarter: 2025Q3

REPORT INFORMATION
  Report Type: Spontaneous
  Country: IL (occurrence: IL)
  Receive Date: 20250818
  Receipt Date: 20250829
  Transmission Date: 20251020
  Serious: Yes (Other)
  Sender: IPSEN BIOPHARMACEUTICALS, INC.
  Company Number: IL-Medison-001515

PATIENT
  Age: 58 Year
  Sex: Male

DRUGS (2)
  1. LANREOTIDE ACETATE [Suspect]
     Active Substance: LANREOTIDE ACETATE
     Indication: Neuroendocrine tumour
     Dosage: DEEP SUBCUTANEOUS
     Route: 058
     Dates: start: 2019
  2. LANREOTIDE ACETATE [Suspect]
     Active Substance: LANREOTIDE ACETATE
     Dosage: DEEP SUBCUTANEOUS
     Route: 058
     Dates: start: 20200924

REACTIONS (13)
  - Erectile dysfunction [Not Recovered/Not Resolved]
  - Dysphonia [Unknown]
  - Amnesia [Unknown]
  - Dry skin [Not Recovered/Not Resolved]
  - Skin hyperpigmentation [Not Recovered/Not Resolved]
  - Pruritus [Unknown]
  - Myalgia [Unknown]
  - Injection site discharge [Unknown]
  - Diarrhoea [Unknown]
  - Premature ejaculation [Unknown]
  - Memory impairment [Unknown]
  - Skin exfoliation [Unknown]
  - Injection site pain [Unknown]

NARRATIVE: CASE EVENT DATE: 20190101
